FAERS Safety Report 5313305-7 (Version None)
Quarter: 2007Q2

REPORT INFORMATION
  Report Type: 
  Country: None (occurrence: None)
  Receive Date: 20070501
  Receipt Date: 20070425
  Transmission Date: 20071010
  Serious: Yes (Death, Other)
  Sender: FDA-Public Use
  Company Number: PHBS2007GR02849

PATIENT
  Age: 13 Year
  Sex: Male

DRUGS (15)
  1. GLEEVEC [Suspect]
     Indication: ACUTE LYMPHOCYTIC LEUKAEMIA
     Dosage: 200 MG, BID
     Route: 048
     Dates: start: 20060703
  2. ZOVIRAX [Concomitant]
     Route: 065
  3. LOSEC [Concomitant]
     Route: 065
  4. V-FEUD [Concomitant]
     Route: 065
  5. SPETRIN [Concomitant]
     Route: 065
  6. CIPROFLOXACIN HYDROCHLORIDE [Concomitant]
     Route: 065
  7. 6-CSF [Concomitant]
     Route: 065
  8. PRIMPERAN INJ [Concomitant]
     Route: 065
  9. TARGOCID [Concomitant]
     Route: 065
  10. BRIKLIN [Concomitant]
     Route: 065
  11. SYNERCID [Concomitant]
     Route: 065
  12. ZYVOX [Concomitant]
     Route: 065
  13. AMBISOME [Concomitant]
     Route: 065
  14. IDA-FLA6 [Concomitant]
     Route: 065
     Dates: start: 20060614, end: 20060813
  15. CARBOCYCLINE [Suspect]
     Route: 065

REACTIONS (3)
  - CARDIAC ARREST [None]
  - CARDIAC FAILURE [None]
  - PULMONARY OEDEMA [None]
